FAERS Safety Report 16650803 (Version 1)
Quarter: 2019Q3

REPORT INFORMATION
  Report Type: Spontaneous
  Country: US (occurrence: US)
  Receive Date: 20190730
  Receipt Date: 20190730
  Transmission Date: 20191004
  Serious: Yes (Other)
  Sender: FDA-Public Use
  Company Number: None

PATIENT
  Age: 48 Year
  Sex: Female
  Weight: 113.4 kg

DRUGS (1)
  1. SOMADERM HGH GEL [Suspect]
     Active Substance: HOMEOPATHICS
     Indication: HOMEOPATHY
     Dates: start: 20180915, end: 20190116

REACTIONS (5)
  - Myalgia [None]
  - Inflammation [None]
  - Headache [None]
  - Arthralgia [None]
  - Weight increased [None]

NARRATIVE: CASE EVENT DATE: 20190124
